FAERS Safety Report 13962257 (Version 1)
Quarter: 2017Q3

REPORT INFORMATION
  Report Type: Spontaneous
  Country: CA (occurrence: CA)
  Receive Date: 20170912
  Receipt Date: 20170912
  Transmission Date: 20171128
  Serious: Yes (Other)
  Sender: FDA-Public Use
  Company Number: CA-TEVA-804231ACC

PATIENT
  Age: 64 Year
  Sex: Female

DRUGS (2)
  1. CEFUROXIME. [Concomitant]
     Active Substance: CEFUROXIME
  2. PREDNISONE. [Suspect]
     Active Substance: PREDNISONE
     Dosage: 100 MILLIGRAM DAILY;
     Route: 048

REACTIONS (7)
  - Panic attack [Unknown]
  - Neurotoxicity [Unknown]
  - Hyperhidrosis [Unknown]
  - Anxiety [Unknown]
  - Feeling abnormal [Unknown]
  - Diarrhoea [Unknown]
  - Disturbance in attention [Unknown]
